FAERS Safety Report 8065818-5 (Version None)
Quarter: 2012Q1

REPORT INFORMATION
  Report Type: 
  Country: None (occurrence: None)
  Receive Date: 20120124
  Receipt Date: 20120112
  Transmission Date: 20120608
  Serious: Yes (Other)
  Sender: FDA-Public Use
  Company Number: CHPA2012US001267

PATIENT
  Sex: Female

DRUGS (2)
  1. EXCEDRIN TENSION HEADACHE CAPLETS [Suspect]
     Indication: TENSION HEADACHE
     Dosage: 2 DF, PRN
     Route: 048
     Dates: end: 20120112
  2. THYROID [Concomitant]
     Indication: THYROID DISORDER
     Dosage: UNK, UNK

REACTIONS (11)
  - PAIN [None]
  - RASH PAPULAR [None]
  - DECREASED ACTIVITY [None]
  - DIZZINESS [None]
  - COMA [None]
  - PURPURA [None]
  - ULCER [None]
  - SECRETION DISCHARGE [None]
  - RASH MACULAR [None]
  - DYSPNOEA [None]
  - PYREXIA [None]
